FAERS Safety Report 7062051-0 (Version None)
Quarter: 2010Q4

REPORT INFORMATION
  Report Type: 
  Country: None (occurrence: None)
  Receive Date: 20101026
  Receipt Date: 20101019
  Transmission Date: 20110411
  Serious: Yes (Death, Hospitalization)
  Sender: FDA-Public Use
  Company Number: A0887510A

PATIENT
  Age: 67 Year
  Sex: Female

DRUGS (2)
  1. PROMACTA [Suspect]
     Dosage: 25MG PER DAY
     Dates: start: 20100517, end: 20100627
  2. CORTICOSTEROIDS [Concomitant]

REACTIONS (2)
  - DEATH [None]
  - PNEUMONIA [None]
